FAERS Safety Report 7320481-3 (Version None)
Quarter: 2011Q1

REPORT INFORMATION
  Report Type: 
  Country: None (occurrence: None)
  Receive Date: 20110228
  Receipt Date: 20110222
  Transmission Date: 20110831
  Serious: Yes (Other)
  Sender: FDA-Public Use
  Company Number: B0702102A

PATIENT
  Age: 85 Year
  Sex: Female

DRUGS (1)
  1. ZOVIRAX [Suspect]
     Route: 042

REACTIONS (2)
  - RED BLOOD CELL COUNT DECREASED [None]
  - ANAEMIA [None]
